FAERS Safety Report 16567704 (Version 2)
Quarter: 2019Q3

REPORT INFORMATION
  Report Type: Spontaneous
  Country: IT (occurrence: IT)
  Receive Date: 20190712
  Receipt Date: 20190726
  Transmission Date: 20191004
  Serious: Yes (Other)
  Sender: FDA-Public Use
  Company Number: IT-ASTRAZENECA-2019SE98170

PATIENT
  Age: 21314 Day
  Sex: Male
  Weight: 70 kg

DRUGS (8)
  1. ACETYLSALICYLIC ACID [Concomitant]
     Active Substance: ASPIRIN
  2. NORVASC [Concomitant]
     Active Substance: AMLODIPINE BESYLATE
     Dosage: 10.0MG UNKNOWN
  3. TORVAST [Concomitant]
     Active Substance: ATORVASTATIN
  4. TAVOR [Concomitant]
  5. TRIATEC [Concomitant]
     Dosage: 5.0MG UNKNOWN
  6. CONGESCOR [Concomitant]
     Active Substance: BISOPROLOL
     Dosage: 2.5MG UNKNOWN
  7. DURVALUMAB. [Suspect]
     Active Substance: DURVALUMAB
     Indication: NON-SMALL CELL LUNG CANCER STAGE III
     Dosage: 700.0MG UNKNOWN
     Route: 042
     Dates: start: 20190304, end: 20190610
  8. LUVION [Concomitant]
     Dosage: 50.0MG UNKNOWN

REACTIONS (3)
  - Malignant neoplasm progression [Recovered/Resolved]
  - General physical health deterioration [Unknown]
  - Weight decreased [Unknown]

NARRATIVE: CASE EVENT DATE: 20190304
